FAERS Safety Report 20016536 (Version 1)
Quarter: 2021Q4

REPORT INFORMATION
  Report Type: Spontaneous
  Country: US (occurrence: None)
  Receive Date: 20211104
  Receipt Date: 20211104
  Transmission Date: 20220304
  Serious: Yes (Other)
  Sender: FDA-Public Use
  Company Number: None

PATIENT
  Age: 66 Year
  Sex: Male
  Weight: 90 kg

DRUGS (10)
  1. VARDENAFIL HYDROCHLORIDE [Suspect]
     Active Substance: VARDENAFIL HYDROCHLORIDE
     Indication: Erectile dysfunction
     Dosage: OTHER QUANTITY : 1 TABLET(S);?FREQUENCY : AS NEEDED;?
     Route: 048
  2. HYDROCHLOROTHIAZIDE [Suspect]
     Active Substance: HYDROCHLOROTHIAZIDE
  3. AMLODIPINE [Suspect]
     Active Substance: AMLODIPINE BESYLATE
  4. LORAZEPAM [Suspect]
     Active Substance: LORAZEPAM
  5. MONTELUKAST SODIUM [Suspect]
     Active Substance: MONTELUKAST SODIUM
  6. LEVITRA [Suspect]
     Active Substance: VARDENAFIL HYDROCHLORIDE
  7. ASPIRIN 81MG [Concomitant]
     Active Substance: ASPIRIN
  8. ALEVE [Concomitant]
     Active Substance: NAPROXEN SODIUM
  9. VICKS NYQUIL [Concomitant]
     Active Substance: ACETAMINOPHEN\DEXTROMETHORPHAN HYDROBROMIDE\DOXYLAMINE SUCCINATE
  10. PEPTO-BISMOL [Concomitant]
     Active Substance: BISMUTH SUBSALICYLATE

REACTIONS (6)
  - Suspected counterfeit product [None]
  - Product substitution issue [None]
  - Product taste abnormal [None]
  - Vomiting [None]
  - Libido decreased [None]
  - Malaise [None]

NARRATIVE: CASE EVENT DATE: 20211103
